FAERS Safety Report 20826541 (Version 1)
Quarter: 2022Q2

REPORT INFORMATION
  Report Type: Report from Study
  Country: US (occurrence: US)
  Receive Date: 20220513
  Receipt Date: 20220513
  Transmission Date: 20220721
  Serious: No
  Sender: FDA-Public Use
  Company Number: US-PHARMACOVIGILANCE-US-KAD-22-00372

PATIENT
  Sex: Female

DRUGS (3)
  1. REZUROCK [Suspect]
     Active Substance: BELUMOSUDIL
     Indication: Product used for unknown indication
     Dosage: 200 MILLIGRAM, BID
     Route: 065
     Dates: start: 20211213
  2. JAKAFI [Concomitant]
     Active Substance: RUXOLITINIB
     Indication: Product used for unknown indication
     Dosage: UNK
  3. JAKAFI [Concomitant]
     Active Substance: RUXOLITINIB
     Dosage: UNK
     Dates: start: 20220423

REACTIONS (9)
  - Insomnia [Unknown]
  - Eye swelling [Unknown]
  - Heart rate increased [Unknown]
  - Nasopharyngitis [Unknown]
  - Decreased appetite [Unknown]
  - Swelling face [Unknown]
  - Cough [Unknown]
  - Pruritus [Unknown]
  - Drug ineffective [Unknown]
